FAERS Safety Report 8490120-7 (Version None)
Quarter: 2012Q3

REPORT INFORMATION
  Report Type: 
  Country: None (occurrence: None)
  Receive Date: 20120705
  Receipt Date: 20120625
  Transmission Date: 20120928
  Serious: Yes (Other)
  Sender: FDA-Public Use
  Company Number: US-SHIONOGI, INC-2012000202

PATIENT
  Age: 28 Year
  Sex: Female

DRUGS (4)
  1. TRAMADOL HYDROCHLORIDE [Suspect]
     Dosage: 600-800 MG
  2. OMEPRAZOLE [Concomitant]
     Dosage: UNK
  3. NAPROXEN [Concomitant]
     Dosage: UNK
  4. ESCITALOPRAM [Concomitant]
     Dosage: UNK

REACTIONS (2)
  - DRUG SCREEN FALSE POSITIVE [None]
  - TOXICITY TO VARIOUS AGENTS [None]
